FAERS Safety Report 4935965-2 (Version None)
Quarter: 2006Q1

REPORT INFORMATION
  Report Type: 
  Country: None (occurrence: None)
  Receive Date: 20060307
  Receipt Date: 20050809
  Transmission Date: 20060701
  Serious: No
  Sender: FDA-Public Use
  Company Number: US-GLAXOSMITHKLINE-A0569520A

PATIENT
  Age: 69 Year
  Sex: Female

DRUGS (17)
  1. REQUIP [Suspect]
     Indication: RESTLESS LEGS SYNDROME
     Dosage: 1MG PER DAY
     Route: 048
     Dates: start: 20050725
  2. DIGITALIS [Concomitant]
  3. SYNTHROID [Concomitant]
  4. DURATUSS [Concomitant]
  5. PROCARDIA [Concomitant]
  6. PLAVIX [Concomitant]
  7. ACIPHEX [Concomitant]
  8. LASIX [Concomitant]
  9. LEVBID [Concomitant]
  10. ASPIRIN [Concomitant]
  11. LIPITOR [Concomitant]
  12. METOPROLOL [Concomitant]
  13. AMBIEN [Concomitant]
  14. ZYRTEC [Concomitant]
  15. ADVAIR DISKUS 100/50 [Concomitant]
  16. PROVENTIL NEBULIZER [Concomitant]
  17. NITROGLYCERIN [Concomitant]

REACTIONS (1)
  - DYSGEUSIA [None]
